FAERS Safety Report 21318934 (Version 2)
Quarter: 2022Q3

REPORT INFORMATION
  Report Type: Spontaneous
  Country: US (occurrence: US)
  Receive Date: 20220911
  Receipt Date: 20220911
  Transmission Date: 20221026
  Serious: No
  Sender: FDA-Public Use
  Company Number: US-SA-SAC20220830000193

PATIENT
  Age: 57 Year
  Sex: Female

DRUGS (2)
  1. DUPIXENT [Suspect]
     Active Substance: DUPILUMAB
     Indication: Eczema
     Dosage: 600 MG, 1X
     Route: 058
     Dates: start: 20220819, end: 20220819
  2. DUPIXENT [Suspect]
     Active Substance: DUPILUMAB
     Indication: Dermatitis allergic
     Dosage: 300 MG, QOW
     Route: 058
     Dates: start: 2022

REACTIONS (13)
  - Swelling face [Unknown]
  - Eye swelling [Unknown]
  - Erythema [Unknown]
  - Inflammation [Unknown]
  - Condition aggravated [Unknown]
  - Eyelid rash [Unknown]
  - Eyelid pain [Unknown]
  - Eczema [Unknown]
  - Eye irritation [Unknown]
  - Pyrexia [Unknown]
  - Vision blurred [Unknown]
  - Ocular hyperaemia [Unknown]
  - Product use in unapproved indication [Unknown]

NARRATIVE: CASE EVENT DATE: 20220101
